FAERS Safety Report 9742774 (Version 1)
Quarter: 2013Q4

REPORT INFORMATION
  Report Type: Spontaneous
  Country: US (occurrence: US)
  Receive Date: 20131210
  Receipt Date: 20131210
  Transmission Date: 20140711
  Serious: No
  Sender: FDA-Public Use
  Company Number: US-009507513-1312USA003771

PATIENT
  Sex: Female

DRUGS (1)
  1. DULERA [Suspect]
     Indication: CHRONIC OBSTRUCTIVE PULMONARY DISEASE
     Dosage: 100MCG/5MCG 1 STANDARD DOSE OF 13, 2 PUFFS TWICE A DAY
     Route: 055
     Dates: start: 201205

REACTIONS (2)
  - Traumatic lung injury [Recovered/Resolved]
  - Drug dose omission [Unknown]
